FAERS Safety Report 15246591 (Version 1)
Quarter: 2018Q3

REPORT INFORMATION
  Report Type: Spontaneous
  Country: JP (occurrence: JP)
  Receive Date: 20180806
  Receipt Date: 20180806
  Transmission Date: 20181010
  Serious: Yes (Hospitalization)
  Sender: FDA-Public Use
  Company Number: JP-ALLERGAN-1838681US

PATIENT
  Age: 64 Year
  Sex: Male

DRUGS (1)
  1. ETIDRONATE DISODIUM UNK [Suspect]
     Active Substance: ETIDRONATE DISODIUM
     Indication: PRODUCT USED FOR UNKNOWN INDICATION
     Route: 048

REACTIONS (2)
  - Decubitus ulcer [Unknown]
  - Pneumonia [Unknown]
